FAERS Safety Report 6060171-0 (Version None)
Quarter: 2009Q1

REPORT INFORMATION
  Report Type: 
  Country: None (occurrence: None)
  Receive Date: 20090128
  Receipt Date: 20090120
  Transmission Date: 20090719
  Serious: Yes (Hospitalization)
  Sender: FDA-Public Use
  Company Number: B0555315A

PATIENT
  Age: 53 Year
  Sex: Male

DRUGS (2)
  1. AMOXICILLIN SODIUM + POTASSIUM CLAVULANATE (FORMULATION UNKN) (AMOX. N [Suspect]
     Indication: ACUTE SINUSITIS
  2. FEXOFENADINE HYDROCHLORID [Concomitant]

REACTIONS (6)
  - CLOSTRIDIUM DIFFICILE COLITIS [None]
  - DIVERTICULUM [None]
  - EMOTIONAL DISTRESS [None]
  - HYPOTENSION [None]
  - LEUKOCYTOSIS [None]
  - TACHYCARDIA [None]
